FAERS Safety Report 25704549 (Version 1)
Quarter: 2025Q3

REPORT INFORMATION
  Report Type: Spontaneous
  Country: EU (occurrence: EU)
  Receive Date: 20250820
  Receipt Date: 20250820
  Transmission Date: 20251021
  Serious: Yes (Other)
  Sender: CHEPLAPHARM
  Company Number: None

PATIENT
  Age: 29 Year
  Sex: Female
  Weight: 75 kg

DRUGS (2)
  1. OLANZAPINE [Suspect]
     Active Substance: OLANZAPINE
     Indication: Schizophrenia
     Dosage: 20 MG IN THE EVENING?DAILY DOSE: 20 MILLIGRAM
     Route: 048
     Dates: start: 20250101, end: 20250430
  2. OLANZAPINE [Suspect]
     Active Substance: OLANZAPINE
     Indication: Psychotic disorder
     Dosage: 20 MG IN THE EVENING?DAILY DOSE: 20 MILLIGRAM
     Route: 048
     Dates: start: 20250101, end: 20250430

REACTIONS (12)
  - Oculogyric crisis [Unknown]
  - Emotional poverty [Not Recovered/Not Resolved]
  - Emotional poverty [Not Recovered/Not Resolved]
  - Apathy [Not Recovered/Not Resolved]
  - Thought blocking [Not Recovered/Not Resolved]
  - Disturbance in attention [Not Recovered/Not Resolved]
  - Restlessness [Unknown]
  - Musculoskeletal stiffness [Unknown]
  - Muscle spasms [Unknown]
  - Blepharospasm [Unknown]
  - Sleep disorder [Unknown]
  - Cognitive disorder [Unknown]

NARRATIVE: CASE EVENT DATE: 20250101
